FAERS Safety Report 13598479 (Version 1)
Quarter: 2017Q2

REPORT INFORMATION
  Report Type: Spontaneous
  Country: US (occurrence: US)
  Receive Date: 20170531
  Receipt Date: 20170531
  Transmission Date: 20170830
  Serious: Yes (Disabling)
  Sender: FDA-Public Use
  Company Number: None

PATIENT
  Age: 10 Year
  Sex: Female
  Weight: 31.05 kg

DRUGS (9)
  1. ZOFRAN [Concomitant]
     Active Substance: ONDANSETRON HYDROCHLORIDE
  2. MVI [Concomitant]
     Active Substance: VITAMINS
  3. VITAMIN C [Concomitant]
     Active Substance: ASCORBIC ACID
  4. RIZATRIPTAN. [Concomitant]
     Active Substance: RIZATRIPTAN
  5. SUCRAID [Suspect]
     Active Substance: SACROSIDASE
     Indication: SUCRASE-ISOMALTASE DEFICIENCY
     Dosage: 5 TEASPOON(S); WITH MEALS/SNACKS?
     Route: 048
     Dates: start: 20170102, end: 20170131
  6. VYVANSE [Concomitant]
     Active Substance: LISDEXAMFETAMINE DIMESYLATE
  7. CYPROHEPTADINE. [Concomitant]
     Active Substance: CYPROHEPTADINE
  8. MAGNESIUM [Concomitant]
     Active Substance: MAGNESIUM
  9. IBUPROFEN. [Concomitant]
     Active Substance: IBUPROFEN

REACTIONS (5)
  - Hypoglycaemia [None]
  - Arthralgia [None]
  - Migraine [None]
  - Product label issue [None]
  - Product taste abnormal [None]

NARRATIVE: CASE EVENT DATE: 20170519
